FAERS Safety Report 6023138-4 (Version None)
Quarter: 2008Q4

REPORT INFORMATION
  Report Type: 
  Country: None (occurrence: None)
  Receive Date: 20081223
  Receipt Date: 20081209
  Transmission Date: 20090506
  Serious: Yes (Other)
  Sender: FDA-Public Use
  Company Number: 2008S1021979

PATIENT
  Age: 69 Year
  Sex: Female

DRUGS (9)
  1. METOPROLOL TARTRATE [Suspect]
     Indication: DRUG USE FOR UNKNOWN INDICATION
     Dosage: 500 MG; ONCE; ORAL
     Route: 048
     Dates: start: 20081207, end: 20081207
  2. ACETYLSALICYLIC ACID SRT [Suspect]
     Indication: DRUG USE FOR UNKNOWN INDICATION
     Dosage: 100 MG; ONCE; ORAL
     Route: 048
     Dates: start: 20081207, end: 20081207
  3. DOXEPIN HCL [Suspect]
     Indication: DRUG USE FOR UNKNOWN INDICATION
     Dosage: 250 MG; ONCE; ORAL
     Route: 048
     Dates: start: 20081207, end: 20081207
  4. NITRENDIPINE (NITRENDIPINE) [Suspect]
     Indication: DRUG USE FOR UNKNOWN INDICATION
     Dosage: 260 MG; ONCE; ORAL
     Route: 048
     Dates: start: 20081207, end: 20081207
  5. SIMVASTATIN [Suspect]
     Indication: DRUG USE FOR UNKNOWN INDICATION
     Dosage: 100 MG; ONCE; ORAL
     Route: 048
     Dates: start: 20081207, end: 20081207
  6. PERAZIN (PERAZINE DIMALONATE) [Suspect]
     Indication: DRUG USE FOR UNKNOWN INDICATION
     Dosage: 250 MG; ONCE; ORAL
     Route: 048
     Dates: start: 20081207, end: 20081207
  7. ATACAND [Suspect]
     Indication: DRUG USE FOR UNKNOWN INDICATION
     Dosage: ; ORAL
     Route: 048
     Dates: start: 20081207, end: 20081207
  8. INSIDON (OPIPRAMOL HYDROCHLORIDE) [Suspect]
     Indication: DRUG USE FOR UNKNOWN INDICATION
     Dosage: 1 G; ONCE; ORAL
     Route: 048
     Dates: start: 20081207, end: 20081207
  9. TORSEMIDE [Suspect]
     Indication: DRUG USE FOR UNKNOWN INDICATION
     Dosage: 100 MG; ONCE; ORAL
     Route: 048
     Dates: start: 20081207, end: 20081207

REACTIONS (2)
  - MULTIPLE DRUG OVERDOSE INTENTIONAL [None]
  - SOMNOLENCE [None]
